FAERS Safety Report 8936961 (Version 1)
Quarter: 2012Q4

REPORT INFORMATION
  Report Type: 
  Country: US (occurrence: US)
  Receive Date: 20121130
  Receipt Date: 20121130
  Transmission Date: 20130627
  Serious: Yes (Other)
  Sender: FDA-Public Use
  Company Number: US-BRISTOL-MYERS SQUIBB COMPANY-17115338

PATIENT
  Age: 86 Year
  Sex: Female

DRUGS (9)
  1. ORENCIA [Suspect]
     Dosage: Last inf:Oct12
     Dates: start: 20120812
  2. PREDNISONE [Concomitant]
  3. OMEPRAZOLE [Concomitant]
  4. LISINOPRIL [Concomitant]
  5. BABY ASPIRIN [Concomitant]
  6. AMLODIPINE [Concomitant]
  7. LEVOTHYROXINE SODIUM [Concomitant]
  8. HYDROCODONE [Concomitant]
  9. LEFLUNOMIDE [Concomitant]

REACTIONS (2)
  - Squamous cell carcinoma [Unknown]
  - Skin lesion excision [Unknown]
